FAERS Safety Report 6406759-6 (Version None)
Quarter: 2009Q4

REPORT INFORMATION
  Report Type: 
  Country: None (occurrence: None)
  Receive Date: 20091020
  Receipt Date: 20091009
  Transmission Date: 20100525
  Serious: Yes (Hospitalization)
  Sender: FDA-Public Use
  Company Number: US-JNJFOC-20091004219

PATIENT
  Sex: Female
  Weight: 77.11 kg

DRUGS (9)
  1. REMICADE [Suspect]
     Indication: CROHN'S DISEASE
     Route: 042
  2. PRILOSEC [Concomitant]
  3. ASCORBIC ACID [Concomitant]
  4. NIFEREX FORTE [Concomitant]
  5. FENTANYL CITRATE [Concomitant]
     Indication: PAIN
  6. SYNTHROID [Concomitant]
     Indication: THYROID DISORDER
  7. PREDNISONE [Concomitant]
  8. VITAMIN [Concomitant]
  9. DILAUDID [Concomitant]

REACTIONS (3)
  - DEHYDRATION [None]
  - DIARRHOEA [None]
  - DRUG EXPOSURE DURING PREGNANCY [None]
